FAERS Safety Report 26102656 (Version 1)
Quarter: 2025Q4

REPORT INFORMATION
  Report Type: Spontaneous
  Country: EU (occurrence: EU)
  Receive Date: 20251128
  Receipt Date: 20251128
  Transmission Date: 20260117
  Serious: Yes (Other)
  Sender: MERCK SHARP & DOHME LLC
  Company Number: None

PATIENT
  Age: 68 Year
  Sex: Male

DRUGS (5)
  1. TEMOZOLOMIDE [Suspect]
     Active Substance: TEMOZOLOMIDE
     Indication: Central nervous system neoplasm
     Dosage: 1 TABLET 250 MG DAILY X 5 DAYS
     Route: 048
     Dates: start: 20250303
  2. VALPROATE SODIUM [Concomitant]
     Active Substance: VALPROATE SODIUM
     Indication: Epilepsy
     Dosage: 1 TABLET DAILY
     Route: 048
     Dates: start: 20250314
  3. HYDROCHLOROTHIAZIDE\RAMIPRIL [Concomitant]
     Active Substance: HYDROCHLOROTHIAZIDE\RAMIPRIL
     Indication: Hypertension
     Dosage: 1 TABLET DAILY
     Route: 048
     Dates: start: 20230709
  4. ONDANSETRON [Concomitant]
     Active Substance: ONDANSETRON
     Indication: Nausea
     Dosage: 1 DIE THE DAYS OF TEMOZOLOMIDE
     Route: 048
     Dates: start: 202503
  5. NORVASC [Concomitant]
     Active Substance: AMLODIPINE BESYLATE
     Indication: Hypertension
     Dosage: 1 TABLET DAILY
     Route: 048
     Dates: start: 20180912

REACTIONS (4)
  - Haematochezia [Recovered/Resolved]
  - Tremor [Recovered/Resolved]
  - Hyperuricaemia [Recovered/Resolved]
  - Toothache [Recovered/Resolved]

NARRATIVE: CASE EVENT DATE: 20250708
